FAERS Safety Report 10725861 (Version 4)
Quarter: 2015Q2

REPORT INFORMATION
  Report Type: Spontaneous
  Country: US (occurrence: None)
  Receive Date: 20150116
  Receipt Date: 20150423
  Transmission Date: 20150821
  Serious: Yes (Hospitalization, Other)
  Sender: FDA-Public Use
  Company Number: ADR-2015-00075

PATIENT
  Age: 52 Year
  Sex: Male

DRUGS (10)
  1. LISINOPRIL. [Concomitant]
     Active Substance: LISINOPRIL
  2. MULTIVITAMIN WITH IRON [Concomitant]
     Active Substance: IRON\VITAMINS
     Dosage: 1 TABLET
  3. LIORESAL [Suspect]
     Active Substance: BACLOFEN
     Indication: MUSCLE SPASTICITY
     Dosage: 300MCG/DAY
  4. OMEPRAZOLE. [Concomitant]
     Active Substance: OMEPRAZOLE
  5. ORAL BACLOFEN [Suspect]
     Active Substance: BACLOFEN
     Dosage: 30 MG TID AC AND HS
  6. DULOXETINE [Concomitant]
     Active Substance: DULOXETINE
  7. SIMVASTATIN. [Concomitant]
     Active Substance: SIMVASTATIN
  8. BOTOX [Concomitant]
     Active Substance: ONABOTULINUMTOXINA
  9. FLOMAX [Concomitant]
     Active Substance: TAMSULOSIN HYDROCHLORIDE
  10. LEVETIRACETAM (KEPPRA) [Concomitant]

REACTIONS (15)
  - Headache [None]
  - Drug withdrawal syndrome [None]
  - Condition aggravated [None]
  - Treatment noncompliance [None]
  - Drug dose omission [None]
  - Imprisonment [None]
  - Gait disturbance [None]
  - Device damage [None]
  - Hypotonia [None]
  - Cerebrovascular accident [None]
  - Muscle spasticity [None]
  - Device ineffective [None]
  - Encephalopathy [None]
  - Drug effect variable [None]
  - Overdose [None]
